FAERS Safety Report 6887463-7 (Version None)
Quarter: 2010Q3

REPORT INFORMATION
  Report Type: 
  Country: None (occurrence: None)
  Receive Date: 20100727
  Receipt Date: 20100524
  Transmission Date: 20110219
  Serious: No
  Sender: FDA-Public Use
  Company Number: 20097106

PATIENT
  Age: 35 Year
  Sex: Female
  Weight: 38 kg

DRUGS (2)
  1. BACLOFEN [Suspect]
     Indication: MUSCLE SPASTICITY
     Dosage: 115-520 MCG, DAILY, INTRATHECAL
     Route: 037
     Dates: start: 20081022
  2. DIDRONEL [Concomitant]

REACTIONS (3)
  - IMPLANT SITE EFFUSION [None]
  - IMPLANT SITE PAIN [None]
  - PYREXIA [None]
